FAERS Safety Report 19730240 (Version 4)
Quarter: 2023Q2

REPORT INFORMATION
  Report Type: Spontaneous
  Country: US (occurrence: US)
  Receive Date: 20210820
  Receipt Date: 20230511
  Transmission Date: 20230722
  Serious: No
  Sender: FDA-Public Use
  Company Number: US-PFIZER INC-202101023130

PATIENT
  Age: 75 Year
  Sex: Female

DRUGS (1)
  1. IBRANCE [Suspect]
     Active Substance: PALBOCICLIB
     Dosage: 125 MG

REACTIONS (5)
  - Diarrhoea [Unknown]
  - Paraesthesia oral [Unknown]
  - Decreased appetite [Unknown]
  - Tongue discomfort [Unknown]
  - Asthenia [Not Recovered/Not Resolved]
